FAERS Safety Report 9423954 (Version 1)
Quarter: 2013Q3

REPORT INFORMATION
  Report Type: Spontaneous
  Country: FR (occurrence: FR)
  Receive Date: 20130729
  Receipt Date: 20130729
  Transmission Date: 20140515
  Serious: Yes (Hospitalization)
  Sender: FDA-Public Use
  Company Number: FR-ROCHE-1252783

PATIENT
  Age: 63 Year
  Sex: Female

DRUGS (2)
  1. ZELBORAF [Suspect]
     Indication: HISTIOCYTOSIS
     Dosage: 240 MG
     Route: 048
     Dates: start: 20121127, end: 201305
  2. ZELBORAF [Suspect]
     Indication: OFF LABEL USE

REACTIONS (2)
  - Squamous cell carcinoma of skin [Recovering/Resolving]
  - Melanocytic naevus [Recovering/Resolving]
